FAERS Safety Report 7179319-X (Version None)
Quarter: 2010Q4

REPORT INFORMATION
  Report Type: 
  Country: None (occurrence: None)
  Receive Date: 20101221
  Receipt Date: 20101215
  Transmission Date: 20110411
  Serious: Yes (Hospitalization)
  Sender: FDA-Public Use
  Company Number: PHHO2010FR01578

PATIENT
  Sex: Female
  Weight: 86 kg

DRUGS (16)
  1. CGS 20267 T30748+TAB [Suspect]
     Indication: BREAST CANCER
     Dosage: 2.5 MG, QD
     Route: 048
     Dates: start: 20041007, end: 20090930
  2. ZOMETA [Suspect]
     Indication: BREAST CANCER
     Dosage: 3.5 MG / 6 MONTH
     Route: 042
     Dates: start: 20041007, end: 20090930
  3. ATARAX [Concomitant]
     Indication: ANXIETY
  4. IXPRIM [Concomitant]
  5. ENDOLELON [Concomitant]
     Indication: LYMPHOEDEMA
  6. PROGARON [Concomitant]
  7. HYPERIUM [Concomitant]
     Indication: HYPERTENSION
  8. ZANIDIP [Concomitant]
     Indication: HYPERTENSION
  9. LASIX [Concomitant]
     Indication: HYPERTENSION
  10. TENORMIN [Concomitant]
     Indication: HYPERTENSION
  11. COAPROVEL [Concomitant]
     Indication: HYPERTENSION
  12. LIPANTHYL [Concomitant]
     Indication: HYPERLIPIDAEMIA
  13. ASPIRIN [Concomitant]
  14. MINERAL TAB [Concomitant]
  15. VITAMIN D [Concomitant]
  16. PROPAFEN [Concomitant]

REACTIONS (14)
  - ANAEMIA [None]
  - BACK PAIN [None]
  - GINGIVAL PAIN [None]
  - INDURATION [None]
  - JAW FRACTURE [None]
  - JAW OPERATION [None]
  - OSTEOMYELITIS [None]
  - OSTEONECROSIS OF JAW [None]
  - OSTEOPOROSIS [None]
  - PAIN IN JAW [None]
  - SOFT TISSUE INFECTION [None]
  - STOMATITIS NECROTISING [None]
  - TOOTH EXTRACTION [None]
  - URTICARIA [None]
